FAERS Safety Report 10681863 (Version 2)
Quarter: 2015Q3

REPORT INFORMATION
  Report Type: Spontaneous
  Country: FR (occurrence: FR)
  Receive Date: 20141230
  Receipt Date: 20150723
  Transmission Date: 20151125
  Serious: Yes (Hospitalization)
  Sender: FDA-Public Use
  Company Number: FR-RANBAXY-2014R3-90917

PATIENT
  Age: 59 Year
  Sex: Male

DRUGS (8)
  1. OMEPRAZOLE. [Suspect]
     Active Substance: OMEPRAZOLE
     Indication: PRODUCT USED FOR UNKNOWN INDICATION
     Dosage: 20 MG, DAILY
     Route: 048
  2. KESTINE [Suspect]
     Active Substance: EBASTINE
     Indication: PRODUCT USED FOR UNKNOWN INDICATION
     Dosage: 10 MG, DAILY
     Route: 048
  3. KALEROID [Suspect]
     Active Substance: POTASSIUM CHLORIDE
     Indication: PRODUCT USED FOR UNKNOWN INDICATION
     Dosage: UNK
     Route: 048
  4. MABTHERA [Suspect]
     Active Substance: RITUXIMAB
     Indication: RHEUMATOID ARTHRITIS
     Dosage: UNK
     Route: 042
     Dates: start: 2009, end: 201410
  5. METOJECT [Suspect]
     Active Substance: METHOTREXATE SODIUM
     Indication: RHEUMATOID ARTHRITIS
     Dosage: 20 MG, 1/WEEK
     Route: 065
  6. CONTANCYL [Suspect]
     Active Substance: PREDNISONE
     Indication: RHEUMATOID ARTHRITIS
     Dosage: 1.5 DF, DAILY
     Route: 048
  7. FOSAMAX [Suspect]
     Active Substance: ALENDRONATE SODIUM
     Indication: PRODUCT USED FOR UNKNOWN INDICATION
     Dosage: UNK
     Route: 048
  8. PARACETAMOL [Suspect]
     Active Substance: ACETAMINOPHEN
     Indication: PRODUCT USED FOR UNKNOWN INDICATION
     Dosage: UNK
     Route: 048

REACTIONS (11)
  - Palpitations [None]
  - Oxygen saturation decreased [None]
  - Asthenia [None]
  - Agranulocytosis [Recovering/Resolving]
  - Headache [None]
  - Productive cough [None]
  - Chills [None]
  - Febrile neutropenia [None]
  - Crepitations [None]
  - Dysuria [None]
  - Dyspnoea [None]

NARRATIVE: CASE EVENT DATE: 20141201
